FAERS Safety Report 6620736-1 (Version None)
Quarter: 2010Q1

REPORT INFORMATION
  Report Type: 
  Country: None (occurrence: None)
  Receive Date: 20100309
  Receipt Date: 20100226
  Transmission Date: 20100710
  Serious: Yes (Hospitalization)
  Sender: FDA-Public Use
  Company Number: JP-ROCHE-680309

PATIENT
  Sex: Male

DRUGS (10)
  1. ACTEMRA [Suspect]
     Indication: JUVENILE ARTHRITIS
     Route: 041
     Dates: start: 20091207, end: 20091222
  2. DEXAMETHASONE PALMITATE [Suspect]
     Indication: JUVENILE ARTHRITIS
     Route: 042
     Dates: start: 20091222, end: 20091222
  3. DEXAMETHASONE PALMITATE [Suspect]
     Route: 042
     Dates: start: 20091229, end: 20091229
  4. PREDONINE [Concomitant]
     Route: 048
     Dates: start: 20090101
  5. PREDONINE [Concomitant]
     Route: 048
     Dates: start: 20090101
  6. NEORAL [Concomitant]
     Dosage: DOSE FORM: PERORAL AGENT.
     Route: 048
  7. RENIVEZE [Concomitant]
     Route: 048
  8. TOWARAT-L [Concomitant]
     Route: 048
  9. TAKEPRON [Concomitant]
     Route: 048
  10. URSO 250 [Concomitant]
     Dosage: DOSE FORM: PERORAL AGENT.
     Route: 048

REACTIONS (5)
  - ABDOMINAL PAIN [None]
  - C-REACTIVE PROTEIN INCREASED [None]
  - HISTIOCYTOSIS HAEMATOPHAGIC [None]
  - HYPERTENSIVE ENCEPHALOPATHY [None]
  - PYREXIA [None]
